FAERS Safety Report 5427920-3 (Version None)
Quarter: 2007Q3

REPORT INFORMATION
  Report Type: 
  Country: None (occurrence: None)
  Receive Date: 20070731
  Receipt Date: 20070502
  Transmission Date: 20080115
  Serious: No
  Sender: FDA-Public Use
  Company Number: US200705005831

PATIENT
  Age: 60 Year
  Sex: Female

DRUGS (5)
  1. BYETTA [Suspect]
     Indication: DIABETES MELLITUS
     Dosage: 5 UG, DAILY (1/D), SUBCUTANEOUS
     Route: 058
     Dates: start: 20070417, end: 20070424
  2. BYETTA [Suspect]
     Indication: DIABETES MELLITUS
     Dosage: 5 UG, DAILY (1/D), SUBCUTANEOUS
     Route: 058
     Dates: start: 20070425
  3. EXENATIDE PEN DISPOSABLE DEVICE [Concomitant]
  4. GLUCOPHAGE [Concomitant]
  5. PRECOSE [Concomitant]

REACTIONS (2)
  - HYPERHIDROSIS [None]
  - PAIN [None]
